FAERS Safety Report 7041534-3 (Version None)
Quarter: 2010Q4

REPORT INFORMATION
  Report Type: 
  Country: None (occurrence: None)
  Receive Date: 20101013
  Receipt Date: 20100607
  Transmission Date: 20110411
  Serious: No
  Sender: FDA-Public Use
  Company Number: US-ASTRAZENECA-2010SE26292

PATIENT
  Sex: Female
  Weight: 41.7 kg

DRUGS (3)
  1. SYMBICORT [Suspect]
     Indication: ASTHMA
     Dosage: 160 MCG BID
     Route: 055
     Dates: start: 20090101
  2. LISINOPRIL [Concomitant]
  3. NYSTATIN [Concomitant]

REACTIONS (3)
  - COUGH [None]
  - ORAL CANDIDIASIS [None]
  - WEIGHT DECREASED [None]
